FAERS Safety Report 24898164 (Version 1)
Quarter: 2025Q1

REPORT INFORMATION
  Report Type: Spontaneous
  Country: PT (occurrence: PT)
  Receive Date: 20250129
  Receipt Date: 20250129
  Transmission Date: 20250409
  Serious: Yes (Death)
  Sender: ROCHE
  Company Number: PT-BoehringerIngelheim-2025-BI-004445

PATIENT
  Age: 41 Year
  Sex: Female

DRUGS (1)
  1. TENECTEPLASE [Suspect]
     Active Substance: TENECTEPLASE
     Indication: Thrombolysis
     Route: 065

REACTIONS (7)
  - General physical health deterioration [Fatal]
  - Hypovolaemic shock [Fatal]
  - Pulmonary embolism [Fatal]
  - Right ventricular dilatation [Fatal]
  - Haemoperitoneum [Fatal]
  - Systolic dysfunction [Fatal]
  - Traumatic liver injury [Fatal]
